FAERS Safety Report 8922217 (Version 1)
Quarter: 2012Q4

REPORT INFORMATION
  Report Type: Report from Study
  Country: US (occurrence: US)
  Receive Date: 20121123
  Receipt Date: 20121123
  Transmission Date: 20130627
  Serious: Yes (Death)
  Sender: FDA-Public Use
  Company Number: US-SANOFI-AVENTIS-2012SA085838

PATIENT
  Age: 60 Year
  Sex: Male

DRUGS (12)
  1. DOCETAXEL [Suspect]
     Indication: ADENOCARCINOMA GASTRIC
     Route: 065
     Dates: end: 20090514
  2. BEVACIZUMAB [Suspect]
     Indication: ADENOCARCINOMA GASTRIC
     Route: 065
     Dates: start: 20090326
  3. BEVACIZUMAB [Suspect]
     Indication: ADENOCARCINOMA GASTRIC
     Route: 065
     Dates: end: 20090416
  4. IRINOTECAN [Suspect]
     Indication: ADENOCARCINOMA GASTRIC
     Route: 065
     Dates: end: 20090514
  5. EPIRUBICIN [Concomitant]
     Indication: ADENOCARCINOMA GASTRIC
  6. CISPLATIN [Concomitant]
     Indication: ADENOCARCINOMA GASTRIC
  7. CAPECITABINE [Concomitant]
     Indication: ADENOCARCINOMA GASTRIC
  8. ATENOLOL [Concomitant]
     Dates: start: 20090227
  9. ESOMEPRAZOLE MAGNESIUM [Concomitant]
     Dates: start: 20090227, end: 20090501
  10. HYDROCHLOROTHIAZIDE [Concomitant]
     Dates: start: 20090306, end: 20090501
  11. HYALURONATE SODIUM [Concomitant]
     Dates: start: 20090423
  12. HYDROCHLOROTHIAZIDE\LISINOPRIL [Concomitant]
     Dates: start: 20090306, end: 20090507

REACTIONS (1)
  - Death [Fatal]
